FAERS Safety Report 5045725-2 (Version None)
Quarter: 2006Q3

REPORT INFORMATION
  Report Type: 
  Country: None (occurrence: None)
  Receive Date: 20060710
  Receipt Date: 20060629
  Transmission Date: 20061208
  Serious: Yes (Hospitalization)
  Sender: FDA-Public Use
  Company Number: PHHO2006EG10485

PATIENT
  Age: 18 Year
  Sex: Male
  Weight: 53 kg

DRUGS (1)
  1. ICL670A [Suspect]
     Indication: HAEMOSIDEROSIS
     Dosage: UNK, QD
     Route: 048

REACTIONS (5)
  - HEPATOMEGALY [None]
  - HYDRONEPHROSIS [None]
  - PERINEPHRIC ABSCESS [None]
  - PERINEPHRIC COLLECTION [None]
  - PYREXIA [None]
